FAERS Safety Report 21128855 (Version 15)
Quarter: 2022Q4

REPORT INFORMATION
  Report Type: Report from Study
  Country: GB (occurrence: GB)
  Receive Date: 20220725
  Receipt Date: 20221228
  Transmission Date: 20230112
  Serious: Yes (Hospitalization, Other)
  Sender: FDA-Public Use
  Company Number: None

PATIENT
  Age: 61 Year
  Sex: Female
  Weight: 62 kg

DRUGS (54)
  1. DOCETAXEL [Suspect]
     Active Substance: DOCETAXEL
     Indication: Breast cancer
     Dosage: 120 MILLIGRAM (STOPPED IN 2012)
     Route: 065
     Dates: start: 20120817
  2. DOCETAXEL [Suspect]
     Active Substance: DOCETAXEL
     Dosage: UNK
     Route: 065
     Dates: start: 20120817
  3. DOCETAXEL [Suspect]
     Active Substance: DOCETAXEL
     Dosage: 80 MILLIGRAM, (INITIATED ON 12-OCT-2012)
     Route: 065
     Dates: start: 20121012
  4. DOCETAXEL [Suspect]
     Active Substance: DOCETAXEL
     Dosage: (INITIATED ON 12-OCT-2012)
     Route: 065
  5. DOCETAXEL [Suspect]
     Active Substance: DOCETAXEL
     Dosage: 120 MILLIGRAM, INITIATED: 10-DEC-2012
     Route: 065
  6. DOCETAXEL [Suspect]
     Active Substance: DOCETAXEL
     Dosage: UNK, INITIATED: 10-DEC-2012
     Route: 065
  7. TRASTUZUMAB [Suspect]
     Active Substance: TRASTUZUMAB
     Indication: Breast cancer
     Dosage: 230 (UNIT UNSPECIFIED)
     Route: 042
     Dates: start: 20120817
  8. TRASTUZUMAB [Suspect]
     Active Substance: TRASTUZUMAB
     Dosage: 420 MILLIGRAM
     Route: 042
     Dates: start: 20120817
  9. TRASTUZUMAB [Suspect]
     Active Substance: TRASTUZUMAB
     Dosage: 546 MG, INTRAVENOUS INFUSION, DRIP
     Route: 042
     Dates: start: 20120817
  10. TRASTUZUMAB [Suspect]
     Active Substance: TRASTUZUMAB
     Dosage: 420 MILLIGRAM
     Route: 042
     Dates: start: 20120817
  11. TRASTUZUMAB [Suspect]
     Active Substance: TRASTUZUMAB
     Dosage: 546 MILLIGRAM, IV DRIP
     Route: 065
     Dates: start: 20120817
  12. TRASTUZUMAB [Suspect]
     Active Substance: TRASTUZUMAB
     Dosage: 420 MG(INITIATED 12-OCT-2012)
     Route: 042
     Dates: start: 20121012
  13. TRASTUZUMAB [Suspect]
     Active Substance: TRASTUZUMAB
     Dosage: 420 MILLIGRAM, (INITIATED 12-OCT-2012)
     Route: 042
  14. TRASTUZUMAB [Suspect]
     Active Substance: TRASTUZUMAB
     Dosage: (INITIATED 12-OCT-2012)
     Route: 042
  15. METFORMIN [Suspect]
     Active Substance: METFORMIN HYDROCHLORIDE
     Indication: Product used for unknown indication
     Dosage: 2 GRAM
     Route: 048
  16. METFORMIN [Suspect]
     Active Substance: METFORMIN HYDROCHLORIDE
     Dosage: 2 GRAM
     Route: 048
  17. CARBOPLATIN [Suspect]
     Active Substance: CARBOPLATIN
     Indication: Breast cancer
     Dosage: 750 MILLIGRAM
     Route: 065
     Dates: start: 20120817
  18. CARBOPLATIN [Suspect]
     Active Substance: CARBOPLATIN
     Dosage: UNK
     Route: 065
     Dates: start: 20120817
  19. CARBOPLATIN [Suspect]
     Active Substance: CARBOPLATIN
     Dosage: 500 MILLIGRAM, (INITIATED 12-OCT-2012)
     Route: 065
     Dates: start: 20121012
  20. CARBOPLATIN [Suspect]
     Active Substance: CARBOPLATIN
     Dosage: UNK, 12-OCT-2012
     Route: 065
  21. HERCEPTIN [Suspect]
     Active Substance: TRASTUZUMAB
     Indication: Product used for unknown indication
     Dosage: 420 MILLIGRAM (INITIATED 12-OCT-2012)
     Route: 065
  22. HERCEPTIN [Suspect]
     Active Substance: TRASTUZUMAB
     Indication: Breast cancer
     Dosage: 546 MILLIGRAM
     Route: 042
     Dates: start: 20120817
  23. HERCEPTIN [Suspect]
     Active Substance: TRASTUZUMAB
     Dosage: 420 MG, INITIATED: 12-OCT-2012 00:00
     Route: 042
  24. PERTUZUMAB [Suspect]
     Active Substance: PERTUZUMAB
     Indication: Breast cancer
     Dosage: 1 MG, Q3W (SAE END: 12/OCT/2012)
     Route: 042
     Dates: start: 20120817
  25. PERTUZUMAB [Suspect]
     Active Substance: PERTUZUMAB
     Dosage: 1G,Q3W(LAST DOSE PRIOR TO SAE:12/OCT/2012)
     Route: 042
     Dates: start: 20120817
  26. PERTUZUMAB [Suspect]
     Active Substance: PERTUZUMAB
     Dosage: 1 MG, Q3W (LAST DOSE PRIOR TO SAE: 12/OCT/2012)
     Route: 042
     Dates: start: 20120817
  27. PERTUZUMAB [Suspect]
     Active Substance: PERTUZUMAB
     Dosage: 1 MG, Q3W (LAST DOSE PRIOR TO SAE: 12/OCT/2012)
     Route: 042
     Dates: start: 20120817, end: 20121012
  28. PERTUZUMAB [Suspect]
     Active Substance: PERTUZUMAB
     Dosage: 1 GRAM
     Route: 042
     Dates: start: 20120817, end: 20121012
  29. PERTUZUMAB [Suspect]
     Active Substance: PERTUZUMAB
     Dosage: INITIATED: 12-OCT-2012 00:00
     Route: 042
     Dates: start: 20121012
  30. PERTUZUMAB [Suspect]
     Active Substance: PERTUZUMAB
     Dosage: INITIATED: 12-OCT-2012 00:00
     Route: 042
  31. TRASTUZUMAB [Suspect]
     Active Substance: TRASTUZUMAB
     Indication: Breast cancer
     Dosage: 420 MILLIGRAM
     Route: 058
     Dates: start: 20120817
  32. TRASTUZUMAB [Suspect]
     Active Substance: TRASTUZUMAB
     Dosage: 420 MILLIGRAM
     Route: 058
     Dates: start: 20120817
  33. TRASTUZUMAB [Suspect]
     Active Substance: TRASTUZUMAB
     Dosage: 546
     Route: 058
     Dates: start: 20120817
  34. TRASTUZUMAB [Suspect]
     Active Substance: TRASTUZUMAB
     Dosage: UNK, INITIATED: 12-OCT-2012 00:00
     Route: 058
  35. TRASTUZUMAB [Suspect]
     Active Substance: TRASTUZUMAB
     Dosage: 420 MILLIGRAM, INITIATED: 12-OCT-2012 00:00
     Route: 058
     Dates: end: 20121012
  36. ONDANSETRON [Concomitant]
     Active Substance: ONDANSETRON
     Indication: Product used for unknown indication
     Dosage: UNK
     Route: 048
     Dates: start: 20120817, end: 20120821
  37. ONDANSETRON [Concomitant]
     Active Substance: ONDANSETRON
     Dosage: UNK
     Route: 065
     Dates: start: 20120817
  38. ONDANSETRON [Concomitant]
     Active Substance: ONDANSETRON
     Dosage: UNK (BOLUS)
     Route: 048
     Dates: start: 20120817, end: 20120821
  39. ONDANSETRON [Concomitant]
     Active Substance: ONDANSETRON
     Dosage: UNK, INITIATION: 14-SEP-2012
     Route: 048
     Dates: start: 20120914, end: 20120918
  40. ONDANSETRON [Concomitant]
     Active Substance: ONDANSETRON
     Dosage: 6 MILLIGRAM (4-6 MG), INITIATION: 12-OCT-2012
     Route: 048
     Dates: start: 20121012, end: 20121018
  41. RANITIDINE [Concomitant]
     Active Substance: RANITIDINE
     Indication: Product used for unknown indication
     Dosage: BOLUS
     Route: 042
     Dates: start: 20120817
  42. RANITIDINE [Concomitant]
     Active Substance: RANITIDINE
     Dosage: UNK, BOLUS
     Route: 065
     Dates: start: 20120817
  43. FILGRASTIM [Concomitant]
     Active Substance: FILGRASTIM
     Indication: Product used for unknown indication
     Dosage: INITIATION: 18-AUG-2012, STOP DATE: 23-AUG-2012
     Route: 065
     Dates: start: 20120818, end: 20120823
  44. FILGRASTIM [Concomitant]
     Active Substance: FILGRASTIM
     Dosage: INITIATION: 14-SEP-2012 00:00
     Route: 065
     Dates: start: 20120914, end: 20120920
  45. FILGRASTIM [Concomitant]
     Active Substance: FILGRASTIM
     Dosage: UNK, INITIATION: 12-OCT-2012
     Route: 065
     Dates: start: 20121012, end: 20121019
  46. DEXAMETHASONE [Concomitant]
     Active Substance: DEXAMETHASONE
     Indication: Product used for unknown indication
     Dosage: UNK
     Route: 065
     Dates: start: 20120816, end: 20120818
  47. METOCLOPRAMIDE [Concomitant]
     Active Substance: METOCLOPRAMIDE
     Indication: Product used for unknown indication
     Dosage: 80 MG(40-80 MG), INITIATION:14-SEP-2012
     Route: 048
     Dates: start: 20120914, end: 20120920
  48. METOCLOPRAMIDE [Concomitant]
     Active Substance: METOCLOPRAMIDE
     Dosage: 80 MG(40-80 MG), INITIATION: 14-SEP-2012
     Route: 048
     Dates: end: 20120920
  49. GLICLAZIDE [Concomitant]
     Active Substance: GLICLAZIDE
     Indication: Product used for unknown indication
     Dosage: UNK
     Route: 065
  50. CHLORPHENIRAMINE MALEATE [Concomitant]
     Active Substance: CHLORPHENIRAMINE MALEATE
     Indication: Product used for unknown indication
     Dosage: BOLUS
     Route: 042
     Dates: start: 20120817
  51. SIMVASTATIN [Concomitant]
     Active Substance: SIMVASTATIN
     Indication: Product used for unknown indication
     Dosage: UNK
     Route: 065
  52. CALCIUM\CHOLECALCIFEROL [Concomitant]
     Active Substance: CALCIUM\CHOLECALCIFEROL
     Indication: Product used for unknown indication
     Dosage: UNK
     Route: 065
     Dates: start: 20120817
  53. CALCIUM\CHOLECALCIFEROL [Concomitant]
     Active Substance: CALCIUM\CHOLECALCIFEROL
     Dosage: UNK
     Route: 065
  54. ONDANSETRON [Concomitant]
     Active Substance: ONDANSETRON
     Indication: Product used for unknown indication
     Dosage: UNK
     Route: 042
     Dates: start: 20120817

REACTIONS (5)
  - Nausea [Recovering/Resolving]
  - Diarrhoea [Recovered/Resolved]
  - Vomiting [Recovering/Resolving]
  - Off label use [Unknown]
  - Intentional product misuse [Unknown]

NARRATIVE: CASE EVENT DATE: 20120817
